FAERS Safety Report 5734379-5 (Version None)
Quarter: 2008Q2

REPORT INFORMATION
  Report Type: 
  Country: None (occurrence: None)
  Receive Date: 20080508
  Receipt Date: 20080508
  Transmission Date: 20081010
  Serious: Yes (Other)
  Sender: FDA-Public Use
  Company Number: None

PATIENT
  Age: 58 Year
  Sex: Female
  Weight: 64.4108 kg

DRUGS (1)
  1. CREST PRO-HEALTH 20 ML PROCTER + GAMBLE [Suspect]
     Indication: DENTAL CARE
     Dosage: 20 ML ONCE A DAY DENTAL
     Route: 004
     Dates: start: 20051101, end: 20070115

REACTIONS (1)
  - TOOTH DISCOLOURATION [None]
